FAERS Safety Report 7389958-9 (Version None)
Quarter: 2011Q2

REPORT INFORMATION
  Report Type: 
  Country: None (occurrence: None)
  Receive Date: 20110401
  Receipt Date: 20110323
  Transmission Date: 20111010
  Serious: Yes (Hospitalization, Disabling)
  Sender: FDA-Public Use
  Company Number: US-ASTRAZENECA-2011SE14054

PATIENT
  Age: 41 Year
  Sex: Female

DRUGS (12)
  1. SEROQUEL [Suspect]
     Indication: SLEEP APNOEA SYNDROME
     Route: 048
     Dates: start: 20101101
  2. SEROQUEL [Suspect]
     Route: 048
     Dates: end: 20101101
  3. SEROQUEL [Suspect]
     Route: 048
  4. POTASSIUM [Concomitant]
  5. CUBICIN [Concomitant]
     Indication: THROMBOSIS PROPHYLAXIS
  6. NEURONTIN [Concomitant]
  7. NEXIUM [Suspect]
     Indication: GASTROOESOPHAGEAL REFLUX DISEASE
     Route: 048
  8. SEROQUEL [Suspect]
     Route: 048
  9. SEROQUEL [Suspect]
     Indication: BIPOLAR DISORDER
     Route: 048
     Dates: start: 20101101
  10. EFFEXOR [Concomitant]
  11. LISINOPRIL [Concomitant]
  12. SEROQUEL [Suspect]
     Route: 048
     Dates: end: 20101101

REACTIONS (13)
  - AGITATION [None]
  - OFF LABEL USE [None]
  - WALKING AID USER [None]
  - SYSTEMIC LUPUS ERYTHEMATOSUS [None]
  - FALL [None]
  - MUSCULAR WEAKNESS [None]
  - IRRITABILITY [None]
  - MUSCULOSKELETAL DISCOMFORT [None]
  - HIP SURGERY [None]
  - ANGER [None]
  - HIP ARTHROPLASTY [None]
  - GOUT [None]
  - NEUROPATHY PERIPHERAL [None]
